FAERS Safety Report 5023301-5 (Version None)
Quarter: 2006Q2

REPORT INFORMATION
  Report Type: 
  Country: None (occurrence: None)
  Receive Date: 20060606
  Receipt Date: 20060519
  Transmission Date: 20061013
  Serious: Yes (Hospitalization)
  Sender: FDA-Public Use
  Company Number: 225085

PATIENT
  Age: 45 Year
  Sex: Female

DRUGS (4)
  1. BEVACIZUMAB OR PLACEBO (BEVACIZUMAB) PWDR + SOLVENT, INFUSION SOLN, 10 [Suspect]
     Indication: PANCREATIC CARCINOMA METASTATIC
     Dosage: 225 MG, Q2W, INTRAVENOUS
     Route: 042
     Dates: start: 20051223, end: 20060510
  2. ERLOTINIB (ERLOTINIB) TABLET [Suspect]
     Indication: PANCREATIC CARCINOMA METASTATIC
     Dosage: 100 MG, QD, ORAL
     Route: 048
     Dates: start: 20051223, end: 20060505
  3. GEMCITABINE [Suspect]
     Indication: PANCREATIC CARCINOMA METASTATIC
     Dosage: 1482 MG, 1/WEEK, INTRAVENOUS
     Route: 042
     Dates: start: 20051223, end: 20060510
  4. MORPHINE [Suspect]
     Indication: DRUG USE FOR UNKNOWN INDICATION

REACTIONS (8)
  - ASTHENIA [None]
  - BILE DUCT OBSTRUCTION [None]
  - DEVICE OCCLUSION [None]
  - ILEUS PARALYTIC [None]
  - MALIGNANT NEOPLASM PROGRESSION [None]
  - OVERDOSE [None]
  - URINARY RETENTION [None]
  - VASCULAR OCCLUSION [None]
